FAERS Safety Report 4999982-9 (Version None)
Quarter: 2006Q2

REPORT INFORMATION
  Report Type: 
  Country: None (occurrence: None)
  Receive Date: 20060501
  Receipt Date: 20060418
  Transmission Date: 20061013
  Serious: Yes (Life-Threatening, Hospitalization)
  Sender: FDA-Public Use
  Company Number: 2006018205

PATIENT
  Age: 60 Year
  Sex: Female

DRUGS (2)
  1. LINEZOLID SOLUTION                    (LINEZOLID) [Suspect]
     Indication: PNEUMONIA STAPHYLOCOCCAL
     Dosage: 1200 MG (INTRAVENOUS
     Route: 042
  2. PIPERACILLIN AND TAZOBACTAM [Concomitant]

REACTIONS (1)
  - PANCREATITIS ACUTE [None]
